FAERS Safety Report 5253595-2 (Version None)
Quarter: 2007Q1

REPORT INFORMATION
  Report Type: 
  Country: None (occurrence: None)
  Receive Date: 20070301
  Receipt Date: 20070221
  Transmission Date: 20070707
  Serious: Yes (Hospitalization)
  Sender: FDA-Public Use
  Company Number: FR-PFIZER INC-2007001749

PATIENT
  Age: 4 Year
  Sex: Female
  Weight: 13.6 kg

DRUGS (1)
  1. GENOTROPIN [Suspect]
     Indication: GROWTH RETARDATION
     Dosage: DAILY DOSE:.7MG-FREQ:DAILY: EVERY DAY
     Route: 058

REACTIONS (3)
  - FACE OEDEMA [None]
  - NEPHROTIC SYNDROME [None]
  - OEDEMA PERIPHERAL [None]
